FAERS Safety Report 4531687-0 (Version None)
Quarter: 2004Q4

REPORT INFORMATION
  Report Type: 
  Country: None (occurrence: None)
  Receive Date: 20041216
  Receipt Date: 20041202
  Transmission Date: 20050328
  Serious: Yes (Hospitalization)
  Sender: FDA-Public Use
  Company Number: US014352

PATIENT
  Age: 25 Year
  Sex: Female

DRUGS (2)
  1. PROVIGIL [Suspect]
     Indication: FATIGUE
     Dates: start: 20040801, end: 20041115
  2. PROVIGIL [Suspect]
     Indication: MULTIPLE SCLEROSIS
     Dates: start: 20040801, end: 20041115

REACTIONS (13)
  - ANTINUCLEAR ANTIBODY POSITIVE [None]
  - DIZZINESS [None]
  - DRUG INTERACTION [None]
  - HEADACHE [None]
  - HYPERSENSITIVITY [None]
  - PYREXIA [None]
  - RASH [None]
  - STRESS SYMPTOMS [None]
  - TOXIC SHOCK SYNDROME [None]
  - URTICARIA [None]
  - VISION BLURRED [None]
  - VISUAL DISTURBANCE [None]
  - WHITE BLOOD CELL COUNT INCREASED [None]
